FAERS Safety Report 24657506 (Version 1)
Quarter: 2024Q4

REPORT INFORMATION
  Report Type: Spontaneous
  Country: CZ (occurrence: CZ)
  Receive Date: 20241125
  Receipt Date: 20241125
  Transmission Date: 20250114
  Serious: Yes (Death, Hospitalization, Other)
  Sender: BOEHRINGER INGELHEIM
  Company Number: CZ-BoehringerIngelheim-2024-BI-064496

PATIENT
  Age: 65 Year

DRUGS (2)
  1. GILOTRIF [Suspect]
     Active Substance: AFATINIB
     Indication: Lung adenocarcinoma stage IV
     Dosage: DAILY DOSE: 30 MILLIGRAM(S)
     Route: 048
     Dates: start: 20160803, end: 201901
  2. GILOTRIF [Suspect]
     Active Substance: AFATINIB
     Indication: EGFR gene mutation
     Dosage: DAILY DOSE: 30 MILLIGRAM(S)
     Route: 048
     Dates: start: 201903, end: 202001

REACTIONS (12)
  - Death [Fatal]
  - Lung neoplasm malignant [Unknown]
  - Malignant neoplasm progression [Not Recovered/Not Resolved]
  - Cerebrovascular disorder [Unknown]
  - Osteolysis [Unknown]
  - Drug resistance [Unknown]
  - Dry skin [Unknown]
  - Rash [Unknown]
  - Paronychia [Unknown]
  - Diarrhoea [Unknown]
  - Bone density increased [Unknown]
  - Bone metabolism disorder [Unknown]

NARRATIVE: CASE EVENT DATE: 20190101
